FAERS Safety Report 7379859-4 (Version None)
Quarter: 2011Q1

REPORT INFORMATION
  Report Type: 
  Country: None (occurrence: None)
  Receive Date: 20110324
  Receipt Date: 20110324
  Transmission Date: 20110831
  Serious: No
  Sender: FDA-Public Use
  Company Number: None

PATIENT
  Age: 65 Year
  Sex: Male
  Weight: 70 kg

DRUGS (1)
  1. HEPARIN [Suspect]
     Indication: NEOPLASM MALIGNANT
     Dates: start: 20110208, end: 20110208

REACTIONS (1)
  - THROMBOCYTOPENIA [None]
